FAERS Safety Report 19010723 (Version 1)
Quarter: 2021Q1

REPORT INFORMATION
  Report Type: Spontaneous
  Country: CN (occurrence: CN)
  Receive Date: 20210315
  Receipt Date: 20210315
  Transmission Date: 20210420
  Serious: Yes (Other)
  Sender: FDA-Public Use
  Company Number: CN-BAXTER-2021BAX004853

PATIENT
  Age: 71 Year
  Sex: Female
  Weight: 55 kg

DRUGS (5)
  1. 0.9% SODIUM CHLORIDE INJECTION [Suspect]
     Active Substance: SODIUM CHLORIDE
     Indication: MEDICATION DILUTION
     Dosage: FIRST CHEMOTHERAPY, NS 40 ML + CYCLOPHOSPHAMIDE 800 MG
     Route: 042
     Dates: start: 20201230, end: 20201230
  2. JINYOULI [Concomitant]
     Active Substance: ANF-RHO
     Indication: PROPHYLAXIS
     Route: 058
     Dates: start: 20201231
  3. ENDOXAN [Suspect]
     Active Substance: CYCLOPHOSPHAMIDE
     Indication: BREAST CANCER FEMALE
     Dosage: FIRST CHEMOTHERAPY, CYCLOPHOSPHAMIDE 800 MG + NS 40 ML
     Route: 042
     Dates: start: 20201230, end: 20201230
  4. AISU [Suspect]
     Active Substance: DOCETAXEL
     Indication: BREAST CANCER FEMALE
     Dosage: FIRST CHEMOTHERAPY, DOCETAXEL 100 MG + NS 250 ML
     Route: 041
     Dates: start: 20201230, end: 20201230
  5. 0.9% SODIUM CHLORIDE INJECTION [Suspect]
     Active Substance: SODIUM CHLORIDE
     Dosage: FIRST CHEMOTHERAPY, NS 250 ML + DOCETAXEL 100 MG
     Route: 041
     Dates: start: 20201230, end: 20201230

REACTIONS (2)
  - Leukopenia [Recovered/Resolved]
  - Agranulocytosis [Recovered/Resolved]

NARRATIVE: CASE EVENT DATE: 20210106
